FAERS Safety Report 8933386 (Version 5)
Quarter: 2013Q2

REPORT INFORMATION
  Report Type: Spontaneous
  Country: JP (occurrence: JP)
  Receive Date: 20121129
  Receipt Date: 20130408
  Transmission Date: 20140414
  Serious: Yes (Death)
  Sender: FDA-Public Use
  Company Number: JP-BRISTOL-MYERS SQUIBB COMPANY-17142852

PATIENT
  Age: 72 Year
  Sex: Female
  Weight: 37 kg

DRUGS (4)
  1. ORENCIA FOR INJ 250 MG/VIAL [Suspect]
     Indication: RHEUMATOID ARTHRITIS
     Dosage: DOSE MISSED:05OCT12?2ND:19OCT2012
     Route: 041
     Dates: start: 20120921, end: 20121019
  2. PREDONINE [Suspect]
     Indication: RHEUMATOID ARTHRITIS
     Dosage: ORAL TO DRIP INF.?PRIOR TO ORENCIA-29JU12:3MG?29JU12-05OC12:5MG?05OCT-29OCT12:10MG
     Route: 048
     Dates: end: 20121029
  3. TAKEPRON [Concomitant]
     Dosage: TAB
  4. EVISTA [Concomitant]
     Dosage: TAB

REACTIONS (3)
  - Multi-organ failure [Fatal]
  - Renal failure acute [Fatal]
  - Urinary tract infection [Fatal]
